FAERS Safety Report 5396489-4 (Version None)
Quarter: 2007Q3

REPORT INFORMATION
  Report Type: 
  Country: None (occurrence: None)
  Receive Date: 20070725
  Receipt Date: 20070717
  Transmission Date: 20080115
  Serious: Yes (Hospitalization)
  Sender: FDA-Public Use
  Company Number: JP-BRISTOL-MYERS SQUIBB COMPANY-13826052

PATIENT
  Age: 65 Year
  Sex: Male

DRUGS (12)
  1. MITOMYCIN-C BULK POWDER [Suspect]
     Indication: GLAUCOMA
     Route: 061
     Dates: start: 20040414, end: 20040901
  2. MITOMYCIN-C BULK POWDER [Suspect]
     Indication: TRABECULECTOMY
     Route: 061
     Dates: start: 20040414, end: 20040901
  3. LEVOFLOXACIN [Concomitant]
     Route: 061
     Dates: start: 20040414, end: 20040901
  4. BETAMETHASONE SODIUM PHOSPHATE [Concomitant]
     Route: 061
     Dates: start: 20040414, end: 20040901
  5. GENTAMICIN [Concomitant]
     Route: 061
     Dates: start: 20040414, end: 20040901
  6. OFLOXACIN [Concomitant]
     Route: 061
     Dates: start: 20040414, end: 20040901
  7. FLUOROMETHOLONE [Concomitant]
     Route: 061
     Dates: start: 20040415
  8. XALATAN [Concomitant]
     Route: 061
     Dates: start: 20031017
  9. TIMOLOL MALEATE [Concomitant]
     Route: 061
     Dates: start: 20031017
  10. TRUSOPT [Concomitant]
     Route: 061
     Dates: start: 20031017
  11. DIAMOX [Concomitant]
     Route: 061
     Dates: start: 20040227
  12. SLOW-K [Concomitant]
     Route: 061
     Dates: start: 20040227

REACTIONS (1)
  - ENDOPHTHALMITIS [None]
